FAERS Safety Report 7081226-8 (Version None)
Quarter: 2010Q4

REPORT INFORMATION
  Report Type: 
  Country: None (occurrence: None)
  Receive Date: 20101025
  Receipt Date: 20101008
  Transmission Date: 20110411
  Serious: Yes (Hospitalization, Other)
  Sender: FDA-Public Use
  Company Number: AUR-APL-2010-02511

PATIENT
  Age: 12 Day
  Sex: Male

DRUGS (1)
  1. LAMOTRIGINE [Suspect]

REACTIONS (6)
  - FEEDING DISORDER NEONATAL [None]
  - GRAND MAL CONVULSION [None]
  - HAEMATEMESIS [None]
  - IRRITABILITY [None]
  - POISONING DELIBERATE [None]
  - VICTIM OF CHILD ABUSE [None]
